FAERS Safety Report 4883255-9 (Version None)
Quarter: 2006Q1

REPORT INFORMATION
  Report Type: 
  Country: None (occurrence: None)
  Receive Date: 20060113
  Receipt Date: 20060104
  Transmission Date: 20060701
  Serious: Yes (Hospitalization)
  Sender: FDA-Public Use
  Company Number: 220802

PATIENT
  Age: 40 Year
  Sex: Male
  Weight: 77 kg

DRUGS (11)
  1. MABTHERA (RITUXIMAB) CONC FOR SOLUTION FOR INFUSION [Suspect]
     Indication: CHRONIC LYMPHOCYTIC LEUKAEMIA
     Dosage: 1 G, QD
     Dates: start: 20051122, end: 20051221
  2. MABTHERA (RITUXIMAB) CONC FOR SOLUTION FOR INFUSION [Suspect]
  3. FLUDARABINE PHOSPHATE [Suspect]
     Indication: CHRONIC LYMPHOCYTIC LEUKAEMIA
     Dosage: 50 MG, QD
     Dates: start: 20051123, end: 20051221
  4. CYCLOPHOSPHAMIDE [Suspect]
     Indication: CHRONIC LYMPHOCYTIC LEUKAEMIA
     Dosage: 500 MG, QD,
     Dates: start: 20051123, end: 20051221
  5. CHLARAXTYNE [Suspect]
  6. DIFLUCAN (FLUCONAZOLE) [Concomitant]
  7. VALACYCLOVIR HCL [Concomitant]
  8. MAXOLON [Concomitant]
  9. ALLOPURINOL [Concomitant]
  10. TRIMETHOPRIM + SULFAMETHOXAZOLE [Concomitant]
  11. G-CSF (FILGRASTIM) [Concomitant]

REACTIONS (8)
  - EAR PAIN [None]
  - HAEMOGLOBIN DECREASED [None]
  - INFECTION [None]
  - LABORATORY TEST ABNORMAL [None]
  - NEUTROPENIA [None]
  - PLATELET COUNT DECREASED [None]
  - RASH [None]
  - RED BLOOD CELL COUNT DECREASED [None]
